FAERS Safety Report 25336402 (Version 1)
Quarter: 2025Q2

REPORT INFORMATION
  Report Type: Spontaneous
  Country: US (occurrence: US)
  Receive Date: 20250520
  Receipt Date: 20250520
  Transmission Date: 20250717
  Serious: No
  Sender: GLAUKOS
  Company Number: US-GLK-000640

PATIENT

DRUGS (1)
  1. PHOTREXA [Suspect]
     Active Substance: RIBOFLAVIN 5^-PHOSPHATE SODIUM
     Indication: Product used for unknown indication
     Route: 047
     Dates: start: 20250425, end: 20250425

REACTIONS (2)
  - Panic attack [Unknown]
  - Therapy cessation [Recovered/Resolved]

NARRATIVE: CASE EVENT DATE: 20250425
